FAERS Safety Report 12190827 (Version 1)
Quarter: 2016Q1

REPORT INFORMATION
  Report Type: Spontaneous
  Country: GB (occurrence: GB)
  Receive Date: 20160318
  Receipt Date: 20160318
  Transmission Date: 20160526
  Serious: Yes (Other)
  Sender: FDA-Public Use
  Company Number: GB-VIIV HEALTHCARE LIMITED-GB2016036100

PATIENT
  Age: 35 Year
  Sex: Male

DRUGS (1)
  1. TRIUMEQ [Suspect]
     Active Substance: ABACAVIR SULFATE\DOLUTEGRAVIR SODIUM\LAMIVUDINE
     Indication: HIV INFECTION
     Dosage: ABACAVIR 600MG, LAMIVUDINE 300MG, DOLUTEGRAVIR 50MG
     Route: 048
     Dates: start: 20160120, end: 20160127

REACTIONS (5)
  - Depressed mood [Unknown]
  - Anxiety [Recovered/Resolved]
  - Crying [Unknown]
  - Fear of open spaces [Unknown]
  - Agitation [Unknown]

NARRATIVE: CASE EVENT DATE: 20160121
